FAERS Safety Report 23560375 (Version 2)
Quarter: 2024Q1

REPORT INFORMATION
  Report Type: Spontaneous
  Country: JP (occurrence: None)
  Receive Date: 20240223
  Receipt Date: 20240318
  Transmission Date: 20240410
  Serious: Yes (Life-Threatening, Disabling)
  Sender: FDA-Public Use
  Company Number: 2022A066645

PATIENT
  Age: 26155 Day
  Sex: Male
  Weight: 63 kg

DRUGS (6)
  1. IMFINZI [Suspect]
     Active Substance: DURVALUMAB
     Indication: Non-small cell lung cancer
     Route: 042
     Dates: start: 20211012, end: 20211104
  2. PREDNISOLONE [Suspect]
     Active Substance: PREDNISOLONE
     Dosage: NUMBER OF SEPARATE DOSAGES UNKNOWN
     Route: 065
     Dates: start: 20211130
  3. PREDNISOLONE [Suspect]
     Active Substance: PREDNISOLONE
     Dosage: DOSE UNKNOWN
     Route: 065
  4. PREDNISOLONE [Suspect]
     Active Substance: PREDNISOLONE
     Dosage: NUMBER OF SEPARATE DOSAGES UNKNOWN
     Route: 065
     Dates: start: 20220201
  5. LANSOPRAZOLE [Concomitant]
     Active Substance: LANSOPRAZOLE
     Indication: Gastric ulcer
     Route: 048
  6. MAGNESIUM OXIDE [Concomitant]
     Active Substance: MAGNESIUM OXIDE
     Indication: Constipation
     Route: 048

REACTIONS (5)
  - Immune-mediated myositis [Recovering/Resolving]
  - Hepatic enzyme increased [Recovering/Resolving]
  - Hyponatraemia [Recovered/Resolved]
  - Hyperglycaemia [Not Recovered/Not Resolved]
  - Radiation pneumonitis [Recovering/Resolving]

NARRATIVE: CASE EVENT DATE: 20211104
